FAERS Safety Report 4791949-9 (Version None)
Quarter: 2005Q4

REPORT INFORMATION
  Report Type: 
  Country: None (occurrence: None)
  Receive Date: 20051005
  Receipt Date: 20050919
  Transmission Date: 20060501
  Serious: Yes (Other)
  Sender: FDA-Public Use
  Company Number: CA_050608271

PATIENT
  Age: 87 Year
  Sex: Female
  Weight: 55 kg

DRUGS (7)
  1. FORTEO [Suspect]
     Indication: OSTEOPOROSIS
     Dosage: 20 UG DAY
     Dates: start: 20050309
  2. CALCIUM GLUCONATE [Concomitant]
  3. VITAMIN D [Concomitant]
  4. ENTROPHEN (ACETYLSALICYLIC ACID) [Concomitant]
  5. HYDROCHLOROTHIAZIDE [Concomitant]
  6. GLUCOSAMINE W/CHONDROITIN [Concomitant]
  7. NORVASC [Concomitant]

REACTIONS (5)
  - ARTHRALGIA [None]
  - BACK PAIN [None]
  - BLOOD PRESSURE INCREASED [None]
  - CONDITION AGGRAVATED [None]
  - EPISTAXIS [None]
